FAERS Safety Report 8523989 (Version 2)
Quarter: 2013Q2

REPORT INFORMATION
  Report Type: Spontaneous
  Country: US (occurrence: US)
  Receive Date: 20120420
  Receipt Date: 20130518
  Transmission Date: 20140414
  Serious: Yes (Other)
  Sender: FDA-Public Use
  Company Number: US-ROCHE-782911

PATIENT
  Age: 16 Year
  Sex: Male
  Weight: 65.83 kg

DRUGS (3)
  1. ACCUTANE [Suspect]
     Indication: ACNE
     Route: 048
     Dates: start: 20040521, end: 20040621
  2. CLARAVIS [Suspect]
     Indication: ACNE
     Route: 048
     Dates: start: 20040316, end: 20040515
  3. CLARAVIS [Suspect]
     Route: 065
     Dates: start: 20040630, end: 20040829

REACTIONS (6)
  - Inflammatory bowel disease [Unknown]
  - Proctitis ulcerative [Unknown]
  - Emotional distress [Unknown]
  - Dry skin [Unknown]
  - Arthralgia [Unknown]
  - Epistaxis [Unknown]
